FAERS Safety Report 22030830 (Version 1)
Quarter: 2023Q1

REPORT INFORMATION
  Report Type: Spontaneous
  Country: CA (occurrence: CA)
  Receive Date: 20230223
  Receipt Date: 20230223
  Transmission Date: 20230418
  Serious: Yes (Life-Threatening, Hospitalization)
  Sender: FDA-Public Use
  Company Number: CA-PFIZER INC-202300077647

PATIENT
  Age: 14 Year
  Sex: Male
  Weight: 41 kg

DRUGS (25)
  1. METHOTREXATE SODIUM [Suspect]
     Active Substance: METHOTREXATE SODIUM
     Dosage: 6670 MG
     Route: 042
  2. ACETAMINOPHEN [Concomitant]
     Active Substance: ACETAMINOPHEN
  3. CALCIUM CARBONATE\CHOLECALCIFEROL [Concomitant]
     Active Substance: CALCIUM CARBONATE\CHOLECALCIFEROL
     Route: 065
  4. CEFTAZIDIME [Concomitant]
     Active Substance: CEFTAZIDIME
  5. CETIRIZINE [Concomitant]
     Active Substance: CETIRIZINE HYDROCHLORIDE
  6. CYCLOPHOSPHAMIDE [Concomitant]
     Active Substance: CYCLOPHOSPHAMIDE
  7. CYTARABINE [Concomitant]
     Active Substance: CYTARABINE
  8. DIMENHYDRINATE [Concomitant]
     Active Substance: DIMENHYDRINATE
  9. DIPHENHYDRAMINE [Concomitant]
     Active Substance: DIPHENHYDRAMINE
  10. DIPHENHYDRAMINE/NYSTATIN/PREDNISONE [Concomitant]
  11. ETOPOSIDE [Concomitant]
     Active Substance: ETOPOSIDE
  12. FUROSEMIDE [Concomitant]
     Active Substance: FUROSEMIDE
  13. HEPARIN SODIUM [Concomitant]
     Active Substance: HEPARIN SODIUM
  14. LANSOPRAZOLE [Concomitant]
     Active Substance: LANSOPRAZOLE
  15. LEUCOVORIN [Concomitant]
     Active Substance: LEUCOVORIN
  16. LEVOFLOXACIN [Concomitant]
     Active Substance: LEVOFLOXACIN
  17. MORPHINE [Concomitant]
     Active Substance: MORPHINE
  18. MYCAMINE [Concomitant]
     Active Substance: MICAFUNGIN SODIUM
  19. NYSTATIN [Concomitant]
     Active Substance: NYSTATIN
  20. ONDANSETRON [Concomitant]
     Active Substance: ONDANSETRON
  21. PIPERACILLIN SODIUM\TAZOBACTAM SODIUM [Concomitant]
     Active Substance: PIPERACILLIN SODIUM\TAZOBACTAM SODIUM
  22. POLYETHYLENE GLYCOLS [Concomitant]
     Active Substance: POLYETHYLENE GLYCOLS
  23. POSACONAZOLE [Concomitant]
     Active Substance: POSACONAZOLE
  24. POTASSIUM CHLORIDE [Concomitant]
     Active Substance: POTASSIUM CHLORIDE
  25. SULFAMETHOXAZOLE\TRIMETHOPRIM [Concomitant]
     Active Substance: SULFAMETHOXAZOLE\TRIMETHOPRIM

REACTIONS (9)
  - Aphasia [Recovered/Resolved]
  - Asthenia [Recovered/Resolved]
  - Disease progression [Recovered/Resolved]
  - Encephalopathy [Recovered/Resolved]
  - Feeling hot [Recovered/Resolved]
  - Gait disturbance [Recovered/Resolved]
  - Hemiparesis [Recovered/Resolved]
  - Leukoencephalopathy [Recovered/Resolved]
  - Nausea [Recovered/Resolved]
